FAERS Safety Report 5451156-3 (Version None)
Quarter: 2007Q3

REPORT INFORMATION
  Report Type: 
  Country: None (occurrence: None)
  Receive Date: 20070913
  Receipt Date: 20070904
  Transmission Date: 20080115
  Serious: Yes (Death, Other)
  Sender: FDA-Public Use
  Company Number: US-BAYER-200711705BWH

PATIENT
  Age: 51 Year
  Sex: Male

DRUGS (3)
  1. NEXAVAR [Suspect]
     Indication: MALIGNANT FIBROUS HISTIOCYTOMA
     Dosage: TOTAL DAILY DOSE: 400 MG  UNIT DOSE: 200 MG
     Route: 048
     Dates: start: 20070530
  2. NEXAVAR [Suspect]
     Dosage: TOTAL DAILY DOSE: 800 MG  UNIT DOSE: 200 MG
     Route: 048
     Dates: end: 20070725
  3. LASIX [Concomitant]
     Dates: start: 20070505

REACTIONS (7)
  - ANURIA [None]
  - BLOOD URINE PRESENT [None]
  - HAEMATURIA [None]
  - HAEMORRHAGE URINARY TRACT [None]
  - MALIGNANT FIBROUS HISTIOCYTOMA [None]
  - RENAL FAILURE [None]
  - URINARY SEDIMENT ABNORMAL [None]
